FAERS Safety Report 18940107 (Version 1)
Quarter: 2021Q1

REPORT INFORMATION
  Report Type: Spontaneous
  Country: US (occurrence: US)
  Receive Date: 20210224
  Receipt Date: 20210224
  Transmission Date: 20210420
  Serious: No
  Sender: FDA-Public Use
  Company Number: None

PATIENT
  Age: 50 Year
  Sex: Female

DRUGS (1)
  1. PIQRAY [Suspect]
     Active Substance: ALPELISIB
     Route: 048
     Dates: start: 202102

REACTIONS (3)
  - Hepatic failure [None]
  - Hepatic mass [None]
  - Breast cancer metastatic [None]

NARRATIVE: CASE EVENT DATE: 20210216
